FAERS Safety Report 14681746 (Version 6)
Quarter: 2018Q4

REPORT INFORMATION
  Report Type: Spontaneous
  Country: US (occurrence: US)
  Receive Date: 20180326
  Receipt Date: 20181108
  Transmission Date: 20190204
  Serious: Yes (Other)
  Sender: FDA-Public Use
  Company Number: US-VIFOR (INTERNATIONAL) INC.-VIT-2017-12130

PATIENT
  Age: 59 Year
  Sex: Female
  Weight: 105.33 kg

DRUGS (30)
  1. CALCITRIOL. [Concomitant]
     Active Substance: CALCITRIOL
  2. FISH OIL CONCENTRATE [Concomitant]
     Active Substance: FISH OIL
  3. MUCINEX [Concomitant]
     Active Substance: GUAIFENESIN
  4. NEXIUM [Concomitant]
     Active Substance: ESOMEPRAZOLE MAGNESIUM
  5. VITAMIN B12 [Concomitant]
     Active Substance: CYANOCOBALAMIN
  6. FERROUS SULFATE. [Concomitant]
     Active Substance: FERROUS SULFATE
  7. GLUCOPHAGE [Concomitant]
     Active Substance: METFORMIN HYDROCHLORIDE
  8. VELTASSA [Suspect]
     Active Substance: PATIROMER
     Route: 048
     Dates: start: 20171019
  9. COLACE [Concomitant]
     Active Substance: DOCUSATE SODIUM
  10. SINGULAIR [Concomitant]
     Active Substance: MONTELUKAST SODIUM
  11. LEVEMIR [Concomitant]
     Active Substance: INSULIN DETEMIR
     Dosage: 100 UNIT/ML SOLUTION, 82 UNITS TWICE A DAY
  12. CLONIDINE HCL [Concomitant]
     Active Substance: CLONIDINE HYDROCHLORIDE
  13. CRESTOR [Concomitant]
     Active Substance: ROSUVASTATIN CALCIUM
  14. MIRALAX [Concomitant]
     Active Substance: POLYETHYLENE GLYCOL 3350
     Dosage: 1 PACKET MIXED WITH 8 OUNCES OF FLUID ONCE A DAY
  15. XANAX XR [Concomitant]
     Active Substance: ALPRAZOLAM
  16. ERGOCALCIFEROL. [Concomitant]
     Active Substance: ERGOCALCIFEROL
  17. FUROSEMIDE. [Concomitant]
     Active Substance: FUROSEMIDE
     Dosage: 40 MG TABLET 1/2 TABLET TWICE A WEEK.
  18. HUMALOG [Concomitant]
     Active Substance: INSULIN LISPRO
     Dosage: 100 UNIT/ ML SOLUTION 55 UNITS
  19. XANAX XR [Concomitant]
     Active Substance: ALPRAZOLAM
  20. LUNESTA [Concomitant]
     Active Substance: ESZOPICLONE
  21. VELTASSA [Suspect]
     Active Substance: PATIROMER
     Indication: HYPERKALAEMIA
     Route: 048
     Dates: start: 20171006
  22. LEXAPRO [Concomitant]
     Active Substance: ESCITALOPRAM OXALATE
  23. PROAIR HFA [Concomitant]
     Active Substance: ALBUTEROL SULFATE
     Dosage: MCG/ACT AEROSOL SOLUTION 2 PUFFS AS NEEDED EVERY 4 HOURS
  24. FOLIC ACID. [Concomitant]
     Active Substance: FOLIC ACID
  25. ASPIRIN 81 [Concomitant]
     Active Substance: ASPIRIN
  26. SKELAXIN [Concomitant]
     Active Substance: METAXALONE
  27. AMLODIPINE BESYLATE. [Concomitant]
     Active Substance: AMLODIPINE BESYLATE
  28. METAMUCIL [Concomitant]
     Active Substance: PLANTAGO SEED
     Dosage: 2 CAPSULES WITH 8 OUNCES OF LIQUID THREE TIMES A DAY
  29. PROZAC [Concomitant]
     Active Substance: FLUOXETINE HYDROCHLORIDE
  30. CLONIDINE HCI [Concomitant]

REACTIONS (11)
  - Constipation [Recovering/Resolving]
  - Hyperparathyroidism secondary [Unknown]
  - Abdominal distension [Unknown]
  - Peripheral swelling [Unknown]
  - Impaired gastric emptying [Unknown]
  - Urinary tract infection [Unknown]
  - Blood potassium increased [Unknown]
  - Frequent bowel movements [Unknown]
  - Nausea [Unknown]
  - Muscle spasms [Unknown]
  - Hypomagnesaemia [Unknown]

NARRATIVE: CASE EVENT DATE: 2017
